FAERS Safety Report 10506037 (Version 3)
Quarter: 2014Q4

REPORT INFORMATION
  Report Type: Report from Study
  Country: US (occurrence: US)
  Receive Date: 20141008
  Receipt Date: 20141028
  Transmission Date: 20150528
  Serious: Yes (Hospitalization, Other)
  Sender: FDA-Public Use
  Company Number: US-EXELIXIS-XL18414004809

PATIENT
  Age: 72 Year
  Sex: Female
  Weight: 54.5 kg

DRUGS (23)
  1. XL184 [Suspect]
     Active Substance: CABOZANTINIB
     Indication: CARCINOID TUMOUR
     Dosage: 40 MG, QD
     Route: 048
     Dates: start: 20140425, end: 20140924
  2. LEVOXYL [Concomitant]
     Active Substance: LEVOTHYROXINE SODIUM
  3. PANCRELIPASE. [Concomitant]
     Active Substance: PANCRELIPASE
  4. FLAGYL [Concomitant]
     Active Substance: METRONIDAZOLE\METRONIDAZOLE HYDROCHLORIDE
  5. ATIVAN [Concomitant]
     Active Substance: LORAZEPAM
  6. SPIRONOLACTONE. [Concomitant]
     Active Substance: SPIRONOLACTONE
  7. ZOFRAN [Concomitant]
     Active Substance: ONDANSETRON HYDROCHLORIDE
  8. AMLODIPINE [Concomitant]
     Active Substance: AMLODIPINE BESYLATE
  9. ATENOLOL. [Concomitant]
     Active Substance: ATENOLOL
  10. CALCIUM CARBONATE. [Concomitant]
     Active Substance: CALCIUM CARBONATE
  11. CELEXA [Concomitant]
     Active Substance: CITALOPRAM HYDROBROMIDE
  12. CYANOCOBALAMIN. [Concomitant]
     Active Substance: CYANOCOBALAMIN
  13. MULTIVITAMIN [Concomitant]
     Active Substance: VITAMINS
  14. NORVASC [Concomitant]
     Active Substance: AMLODIPINE BESYLATE
  15. OCTREOTIDE ACETATE. [Concomitant]
     Active Substance: OCTREOTIDE ACETATE
  16. OXYCODONE [Concomitant]
     Active Substance: OXYCODONE
  17. CHOLESTYRAMINE RESIN [Concomitant]
     Active Substance: CHOLESTYRAMINE
  18. LOMOTIL [Concomitant]
     Active Substance: ATROPINE SULFATE\DIPHENOXYLATE HYDROCHLORIDE
  19. NIACINAMIDE [Concomitant]
     Active Substance: NIACINAMIDE
  20. OLANZAPINE. [Concomitant]
     Active Substance: OLANZAPINE
  21. OMEPRAZOLE. [Concomitant]
     Active Substance: OMEPRAZOLE
  22. CIPROFLOXACIN. [Concomitant]
     Active Substance: CIPROFLOXACIN
  23. ONDANSETRON [Concomitant]
     Active Substance: ONDANSETRON

REACTIONS (12)
  - Chest pain [Unknown]
  - Vomiting [Not Recovered/Not Resolved]
  - Abdominal pain upper [Not Recovered/Not Resolved]
  - Hypotension [Unknown]
  - Abdominal pain [Unknown]
  - Hypertension [Unknown]
  - Bradycardia [Unknown]
  - Nausea [Not Recovered/Not Resolved]
  - Renal cyst [Unknown]
  - Cholecystitis [Unknown]
  - Cholelithiasis [Unknown]
  - Acute kidney injury [Unknown]

NARRATIVE: CASE EVENT DATE: 20140924
